FAERS Safety Report 13181838 (Version 1)
Quarter: 2017Q1

REPORT INFORMATION
  Report Type: Spontaneous
  Country: US (occurrence: US)
  Receive Date: 20170202
  Receipt Date: 20170202
  Transmission Date: 20170428
  Serious: No
  Sender: FDA-Public Use
  Company Number: US-IMPAX LABORATORIES, INC-2016-IPXL-01501

PATIENT
  Age: 88 Year
  Sex: Male
  Weight: 77 kg

DRUGS (1)
  1. RYTARY [Suspect]
     Active Substance: CARBIDOPA\LEVODOPA
     Indication: PARKINSON^S DISEASE
     Dosage: 36.25/145 MG 3 CAPSULES, TID
     Route: 048
     Dates: start: 201610, end: 201610

REACTIONS (5)
  - Drug ineffective [Unknown]
  - Bruxism [Recovered/Resolved]
  - Tongue biting [Recovered/Resolved]
  - Tremor [Recovered/Resolved]
  - Insomnia [Recovered/Resolved]

NARRATIVE: CASE EVENT DATE: 201610
